FAERS Safety Report 25394824 (Version 1)
Quarter: 2025Q2

REPORT INFORMATION
  Report Type: Spontaneous
  Country: US (occurrence: US)
  Receive Date: 20250604
  Receipt Date: 20250604
  Transmission Date: 20250716
  Serious: No
  Sender: TEVA
  Company Number: US-TEVA-VS-3337205

PATIENT
  Sex: Female

DRUGS (1)
  1. UZEDY [Suspect]
     Active Substance: RISPERIDONE
     Indication: Product used for unknown indication
     Route: 065
     Dates: start: 20250526

REACTIONS (3)
  - Swollen tongue [Unknown]
  - Asthenia [Unknown]
  - Dysarthria [Unknown]

NARRATIVE: CASE EVENT DATE: 20250501
